FAERS Safety Report 7374380-1 (Version None)
Quarter: 2011Q1

REPORT INFORMATION
  Report Type: 
  Country: None (occurrence: None)
  Receive Date: 20110325
  Receipt Date: 20110322
  Transmission Date: 20110831
  Serious: Yes (Hospitalization)
  Sender: FDA-Public Use
  Company Number: US-JNJFOC-20110305567

PATIENT
  Age: 49 Year
  Sex: Female

DRUGS (2)
  1. BENADRYL [Suspect]
     Indication: SINUS DISORDER
     Route: 048
  2. BENADRYL [Suspect]
     Indication: MULTIPLE ALLERGIES
     Route: 048

REACTIONS (1)
  - MYOCARDIAL INFARCTION [None]
